FAERS Safety Report 4681624-3 (Version None)
Quarter: 2005Q2

REPORT INFORMATION
  Report Type: 
  Country: None (occurrence: None)
  Receive Date: 20050602
  Receipt Date: 20050525
  Transmission Date: 20051028
  Serious: Yes (Death, Congenital Anomaly)
  Sender: FDA-Public Use
  Company Number: 232158K05USA

PATIENT
  Sex: Male

DRUGS (1)
  1. REBIF [Suspect]
     Indication: MULTIPLE SCLEROSIS
     Dosage: I.U
     Route: 015
     Dates: start: 20030916, end: 20040906

REACTIONS (6)
  - CHONDRODYSTROPHY [None]
  - CONGENITAL ANOMALY [None]
  - DRUG EXPOSURE DURING PREGNANCY [None]
  - HEART DISEASE CONGENITAL [None]
  - INTRA-UTERINE DEATH [None]
  - STILLBIRTH [None]
